FAERS Safety Report 8268961-0 (Version None)
Quarter: 2012Q1

REPORT INFORMATION
  Report Type: 
  Country: None (occurrence: None)
  Receive Date: 20120327
  Receipt Date: 20090519
  Transmission Date: 20120608
  Serious: Yes (Other)
  Sender: FDA-Public Use
  Company Number: PHEH2009US05017

PATIENT
  Age: 79 Year
  Sex: Female

DRUGS (3)
  1. GLEEVEC [Suspect]
     Indication: GASTRIC CANCER
     Dosage: 400 MG, QD, ORAL
     Route: 048
     Dates: start: 20090109
  2. MEDROL [Suspect]
  3. PREDNISONE TAB [Concomitant]

REACTIONS (3)
  - HERPES ZOSTER [None]
  - VOMITING [None]
  - NAUSEA [None]
